FAERS Safety Report 13763012 (Version 1)
Quarter: 2017Q3

REPORT INFORMATION
  Report Type: Spontaneous
  Country: US (occurrence: US)
  Receive Date: 20170718
  Receipt Date: 20170718
  Transmission Date: 20171127
  Serious: Yes (Hospitalization)
  Sender: FDA-Public Use
  Company Number: None

PATIENT
  Age: 64 Year
  Sex: Female
  Weight: 69 kg

DRUGS (2)
  1. AZACITIDINE 75MG/M2 [Suspect]
     Active Substance: AZACITIDINE
     Indication: ACUTE MYELOID LEUKAEMIA
     Dosage: 75MG/M2 ONCE DAILY FOR 7 DAYS 041
     Dates: start: 20170707, end: 20170713
  2. PEMBROLIZUMAB 200MG [Suspect]
     Active Substance: PEMBROLIZUMAB
     Indication: ACUTE MYELOID LEUKAEMIA
     Dosage: 200MG ONCE EVERY THREE WEEK 041
     Dates: start: 20170630

REACTIONS (7)
  - Chest pain [None]
  - Dyspnoea [None]
  - Pain [None]
  - Blood pressure increased [None]
  - Palpitations [None]
  - Dyspnoea exertional [None]
  - Heart rate increased [None]

NARRATIVE: CASE EVENT DATE: 20170715
